FAERS Safety Report 24421202 (Version 1)
Quarter: 2024Q4

REPORT INFORMATION
  Report Type: Spontaneous
  Country: US (occurrence: US)
  Receive Date: 20241010
  Receipt Date: 20241010
  Transmission Date: 20250115
  Serious: Yes (Hospitalization)
  Sender: ACCORD
  Company Number: US-MLMSERVICE-20240923-PI202334-00162-1

PATIENT
  Age: 70 Year
  Sex: Female

DRUGS (1)
  1. FUROSEMIDE [Suspect]
     Active Substance: FUROSEMIDE
     Indication: Renal failure
     Dosage: RECEIVED A FEW DOSES BEFORE STARTING DIALYSIS

REACTIONS (6)
  - Gastrointestinal ulcer haemorrhage [Unknown]
  - Encephalopathy [Recovered/Resolved]
  - Acute febrile neutrophilic dermatosis [Recovered/Resolved]
  - Gastrointestinal haemorrhage [Unknown]
  - Gastric mucosal hypertrophy [Unknown]
  - Off label use [Unknown]
